FAERS Safety Report 5390794-3 (Version None)
Quarter: 2007Q3

REPORT INFORMATION
  Report Type: 
  Country: None (occurrence: None)
  Receive Date: 20070718
  Receipt Date: 20070716
  Transmission Date: 20080115
  Serious: Yes (Disabling)
  Sender: FDA-Public Use
  Company Number: US-MERCK-0706USA04935

PATIENT
  Age: 66 Year
  Sex: Male
  Weight: 90 kg

DRUGS (2)
  1. VYTORIN [Suspect]
     Indication: BLOOD CHOLESTEROL
     Route: 048
     Dates: start: 20070201, end: 20070624
  2. AVALIDE [Concomitant]
     Indication: HYPERTENSION
     Route: 065

REACTIONS (3)
  - FATIGUE [None]
  - MOBILITY DECREASED [None]
  - RHABDOMYOLYSIS [None]
